FAERS Safety Report 10778044 (Version 1)
Quarter: 2015Q1

REPORT INFORMATION
  Report Type: Spontaneous
  Country: US (occurrence: US)
  Receive Date: 20150209
  Receipt Date: 20150209
  Transmission Date: 20150721
  Serious: No
  Sender: FDA-Public Use
  Company Number: US-AMGEN-USASP2014024276

PATIENT
  Age: 53 Year
  Sex: Female

DRUGS (17)
  1. NEULASTA [Suspect]
     Active Substance: PEGFILGRASTIM
     Indication: BREAST CANCER
     Dosage: 6 MG, UNK
     Route: 058
     Dates: start: 20120530
  2. DECADRON [Concomitant]
     Active Substance: DEXAMETHASONE
     Dosage: 20 MG, UNK
     Route: 042
     Dates: start: 20120530
  3. HERCEPTIN [Concomitant]
     Active Substance: TRASTUZUMAB
     Indication: BREAST CANCER
     Dosage: 4 MG/KG, LOADING DOSE (192 MG,1 IN 2 WK)
     Route: 042
     Dates: start: 20120530
  4. DOCETAXEL. [Concomitant]
     Active Substance: DOCETAXEL
     Dosage: 75 MG/M2, UNK
     Route: 042
     Dates: start: 20120530
  5. HERCEPTIN [Concomitant]
     Active Substance: TRASTUZUMAB
     Dosage: 2 MG/KG (95 MG)
     Route: 042
     Dates: start: 20120627
  6. HERCEPTIN [Concomitant]
     Active Substance: TRASTUZUMAB
     Dosage: 2MG/KG (94 MG)
     Route: 042
     Dates: start: 20120802
  7. EMEND [Concomitant]
     Active Substance: APREPITANT
     Dosage: 150 MG, UNK
     Route: 042
     Dates: start: 20120530
  8. HERCEPTIN [Concomitant]
     Active Substance: TRASTUZUMAB
     Dosage: 2MG/KG (96 MG)
     Route: 042
     Dates: start: 20130206
  9. HERCEPTIN [Concomitant]
     Active Substance: TRASTUZUMAB
     Dosage: 282 MG, UNK
     Route: 042
     Dates: start: 20121001
  10. HERCEPTIN [Concomitant]
     Active Substance: TRASTUZUMAB
     Dosage: 6MG/KG (288 MG)
     Route: 042
     Dates: start: 20121024
  11. HERCEPTIN [Concomitant]
     Active Substance: TRASTUZUMAB
     Dosage: 2MG/KG (94 MG)
     Route: 042
     Dates: start: 20121121
  12. ZOFRAN                             /00955301/ [Concomitant]
     Active Substance: ONDANSETRON HYDROCHLORIDE
     Dosage: 12 MG, UNK
     Route: 042
     Dates: start: 20120530
  13. HERCEPTIN [Concomitant]
     Active Substance: TRASTUZUMAB
     Dosage: 2 MG/KG (96 MG, 1 IN 1 WK)
     Route: 042
     Dates: start: 20120606
  14. DECADRON [Concomitant]
     Active Substance: DEXAMETHASONE
     Dosage: 20 MG, UNK
     Route: 042
     Dates: start: 20120711
  15. NORMAL SALINE [Concomitant]
     Active Substance: SODIUM CHLORIDE
     Dosage: 250 ML, UNK
     Route: 042
     Dates: start: 20120530
  16. CARBOPLATIN. [Concomitant]
     Active Substance: CARBOPLATIN
     Dosage: 575 MG, UNK
     Route: 042
     Dates: start: 20120530
  17. TYLENOL [Concomitant]
     Active Substance: ACETAMINOPHEN
     Dosage: UNK

REACTIONS (4)
  - Dysuria [Unknown]
  - Diarrhoea [Unknown]
  - Muscle spasms [Unknown]
  - Fatigue [Unknown]
